FAERS Safety Report 8547554-1 (Version None)
Quarter: 2012Q3

REPORT INFORMATION
  Report Type: 
  Country: None (occurrence: None)
  Receive Date: 20120727
  Receipt Date: 20120402
  Transmission Date: 20120928
  Serious: No
  Sender: FDA-Public Use
  Company Number: US-ASTRAZENECA-2012SE21827

PATIENT
  Age: 6614 Day
  Sex: Male
  Weight: 63 kg

DRUGS (4)
  1. TRAZODONE HCL [Concomitant]
     Indication: INSOMNIA
     Route: 048
  2. MELATONIN [Concomitant]
     Indication: INSOMNIA
     Route: 048
  3. VYVANSE [Concomitant]
     Indication: ATTENTION DEFICIT/HYPERACTIVITY DISORDER
     Route: 048
  4. SEROQUEL [Suspect]
     Indication: BIPOLAR DISORDER
     Dosage: 200 MG IN THE MORNING, 400 MG AT NIGHT
     Route: 048
     Dates: start: 20080101, end: 20120330

REACTIONS (5)
  - NAUSEA [None]
  - TREMOR [None]
  - INSOMNIA [None]
  - VOMITING [None]
  - INTENTIONAL DRUG MISUSE [None]
